FAERS Safety Report 25093066 (Version 1)
Quarter: 2025Q1

REPORT INFORMATION
  Report Type: Spontaneous
  Country: TR (occurrence: TR)
  Receive Date: 20250319
  Receipt Date: 20250319
  Transmission Date: 20250409
  Serious: Yes (Death, Hospitalization, Congenital Anomaly)
  Sender: Alora Pharma
  Company Number: TR-OSMOTICA PHARMACEUTICALS-2025ALO00113

PATIENT
  Sex: Female
  Weight: 1.88 kg

DRUGS (1)
  1. VENLAFAXINE [Suspect]
     Active Substance: VENLAFAXINE HYDROCHLORIDE
     Dosage: 75 MG, 1X/DAY
     Route: 064

REACTIONS (3)
  - VACTERL syndrome [Fatal]
  - Cardio-respiratory arrest [Fatal]
  - Foetal exposure during pregnancy [Fatal]
